FAERS Safety Report 24301554 (Version 1)
Quarter: 2024Q3

REPORT INFORMATION
  Report Type: Spontaneous
  Country: US (occurrence: US)
  Receive Date: 20240910
  Receipt Date: 20240910
  Transmission Date: 20241016
  Serious: Yes (Death, Life-Threatening, Hospitalization, Other)
  Sender: AMGEN
  Company Number: US-AMGEN-USASP2024178629

PATIENT
  Age: 67 Year
  Sex: Female

DRUGS (7)
  1. PREDNISONE [Suspect]
     Active Substance: PREDNISONE
     Indication: Interstitial lung disease
     Dosage: 40 MILLIGRAM, QD, RECEIVED FOR JUST TWO DAYS
     Route: 048
  2. ANASTROZOLE [Concomitant]
     Active Substance: ANASTROZOLE
     Indication: Invasive ductal breast carcinoma
     Dosage: UNK
     Route: 065
  3. PERJETA HERCEPTIN [Concomitant]
     Indication: Invasive ductal breast carcinoma
     Dosage: UNK
     Route: 065
     Dates: start: 202212
  4. CEFEPIME [Concomitant]
     Active Substance: CEFEPIME HYDROCHLORIDE
     Indication: Pneumonia bacterial
     Dosage: UNK
     Route: 065
  5. AZITHROMYCIN [Concomitant]
     Active Substance: AZITHROMYCIN
     Indication: Pneumonia bacterial
     Dosage: UNK
     Route: 065
  6. VANCOMYCIN [Concomitant]
     Active Substance: VANCOMYCIN
     Indication: Pneumonia bacterial
     Dosage: UNK
     Route: 065
  7. METHYLPREDNISOLONE [Concomitant]
     Active Substance: METHYLPREDNISOLONE
     Indication: Pneumonia bacterial
     Dosage: 60 MILLIGRAM, ONE DOSE
     Route: 042

REACTIONS (18)
  - Death [Fatal]
  - Acute respiratory failure [Unknown]
  - Hypoxia [Unknown]
  - Supraventricular tachycardia [Unknown]
  - Leukopenia [Unknown]
  - Thrombocytopenia [Unknown]
  - Pancytopenia [Unknown]
  - Hepatic mass [Unknown]
  - Ascites [Unknown]
  - Splenomegaly [Unknown]
  - Hepatotoxicity [Unknown]
  - Meningitis tuberculous [Unknown]
  - Hydrocephalus [Unknown]
  - CSF protein increased [Unknown]
  - CSF glucose decreased [Unknown]
  - Pleocytosis [Unknown]
  - Blood bilirubin increased [Unknown]
  - Mycobacterium tuberculosis complex test positive [Unknown]
